FAERS Safety Report 5657658-9 (Version None)
Quarter: 2008Q1

REPORT INFORMATION
  Report Type: 
  Country: None (occurrence: None)
  Receive Date: 20080310
  Receipt Date: 20080229
  Transmission Date: 20080703
  Serious: Yes (Hospitalization, Other)
  Sender: FDA-Public Use
  Company Number: PHEH2008US00773

PATIENT
  Age: 13 Year
  Weight: 43.5 kg

DRUGS (4)
  1. CALCIUM [Concomitant]
     Dosage: 600 MG, QD
     Route: 048
  2. VITAMIN D [Concomitant]
     Dosage: 400 U, QD
     Route: 048
  3. CENTRUM SILVER [Concomitant]
     Dosage: UNK, QD
     Route: 048
  4. EXJADE [Suspect]
     Indication: THALASSAEMIA BETA
     Dosage: 1000MG, QD
     Route: 048
     Dates: start: 20060501, end: 20080111

REACTIONS (3)
  - ENDOSCOPY [None]
  - FLANK PAIN [None]
  - NEPHROLITHIASIS [None]
